FAERS Safety Report 12290896 (Version 6)
Quarter: 2016Q2

REPORT INFORMATION
  Report Type: Spontaneous
  Country: US (occurrence: US)
  Receive Date: 20160421
  Receipt Date: 20160526
  Transmission Date: 20160815
  Serious: Yes (Other)
  Sender: FDA-Public Use
  Company Number: US-009507513-1604USA013852

PATIENT
  Sex: Female

DRUGS (1)
  1. NEXPLANON [Suspect]
     Active Substance: ETONOGESTREL
     Dosage: 1 ROD EVERY 3 YEARS
     Route: 059
     Dates: start: 201510

REACTIONS (7)
  - Device dislocation [Not Recovered/Not Resolved]
  - Localised infection [Unknown]
  - Medical device site discomfort [Unknown]
  - Implant site discharge [Unknown]
  - Implant site swelling [Unknown]
  - Implant site erythema [Unknown]
  - Product quality issue [Unknown]
